FAERS Safety Report 20417382 (Version 1)
Quarter: 2022Q1

REPORT INFORMATION
  Report Type: Spontaneous
  Country: US (occurrence: None)
  Receive Date: 20220202
  Receipt Date: 20220202
  Transmission Date: 20220424
  Serious: No
  Sender: FDA-Public Use
  Company Number: None

PATIENT
  Sex: Female

DRUGS (2)
  1. EVEROLIMUS [Suspect]
     Active Substance: EVEROLIMUS
     Indication: Endometrial cancer
     Dosage: FREQUENCY : DAILY;?
     Route: 048
     Dates: start: 202201, end: 202201
  2. EVEROLIMUS [Suspect]
     Active Substance: EVEROLIMUS
     Indication: Uterine cancer

REACTIONS (2)
  - Therapy cessation [None]
  - Drug ineffective [None]
